FAERS Safety Report 18220005 (Version 1)
Quarter: 2020Q3

REPORT INFORMATION
  Report Type: Spontaneous
  Country: GB (occurrence: GB)
  Receive Date: 20200901
  Receipt Date: 20200901
  Transmission Date: 20201103
  Serious: No
  Sender: FDA-Public Use
  Company Number: GB-MARKSANS PHARMA LIMITED-2089305

PATIENT
  Sex: Female

DRUGS (1)
  1. IBUPROFEN MOLECULE FROM UK MARKET [Suspect]
     Active Substance: IBUPROFEN
     Route: 048

REACTIONS (2)
  - Swollen tongue [None]
  - Oral discomfort [None]
